FAERS Safety Report 7972503-4 (Version None)
Quarter: 2011Q4

REPORT INFORMATION
  Report Type: 
  Country: None (occurrence: None)
  Receive Date: 20111122
  Receipt Date: 20110617
  Transmission Date: 20120403
  Serious: No
  Sender: FDA-Public Use
  Company Number: PHHY2011US38548

PATIENT
  Age: 43 Year
  Sex: Male
  Weight: 104.7 kg

DRUGS (4)
  1. GABAPENTIN [Concomitant]
  2. GILENYA [Suspect]
     Indication: RELAPSING-REMITTING MULTIPLE SCLEROSIS
     Dosage: 0.5 MG, QD, ORAL
     Route: 048
     Dates: start: 20110421
  3. OMEPRAZOLE [Concomitant]
  4. ROPINIROLE [Concomitant]

REACTIONS (5)
  - FATIGUE [None]
  - INFLUENZA LIKE ILLNESS [None]
  - PRURITUS [None]
  - PAIN [None]
  - POLLAKIURIA [None]
